FAERS Safety Report 13369466 (Version 1)
Quarter: 2017Q1

REPORT INFORMATION
  Report Type: Report from Study
  Country: US (occurrence: US)
  Receive Date: 20170324
  Receipt Date: 20170324
  Transmission Date: 20170429
  Serious: Yes (Hospitalization, Other)
  Sender: FDA-Public Use
  Company Number: US-GLAXOSMITHKLINE-US2017GSK041227

PATIENT

DRUGS (1)
  1. LAMOTRIGINE. [Suspect]
     Active Substance: LAMOTRIGINE
     Indication: PRODUCT USED FOR UNKNOWN INDICATION
     Dosage: 6-8 GRAMS OF LAMOTRIGINE SUSTAINED RELEASE FORMULATION

REACTIONS (6)
  - Agitation [Unknown]
  - Toxicity to various agents [Unknown]
  - Myoclonus [Unknown]
  - Somnolence [Unknown]
  - Overdose [Unknown]
  - Delirium [Unknown]
